FAERS Safety Report 5283152-3 (Version None)
Quarter: 2007Q1

REPORT INFORMATION
  Report Type: 
  Country: None (occurrence: None)
  Receive Date: 20070327
  Receipt Date: 20070312
  Transmission Date: 20070707
  Serious: Yes (Hospitalization)
  Sender: FDA-Public Use
  Company Number: ST-2007-009638

PATIENT
  Age: 37 Year
  Sex: Female

DRUGS (6)
  1. OLMETEC [Suspect]
     Indication: HYPERTENSION
     Dosage: 20 MG QD PO
     Route: 048
     Dates: start: 20061218, end: 20070213
  2. AMLODIN [Concomitant]
  3. LASIX [Concomitant]
  4. CALBLOCK [Concomitant]
  5. CARDENALIN [Concomitant]
  6. SURULAC S [Concomitant]

REACTIONS (4)
  - CONDITION AGGRAVATED [None]
  - LYMPHOCYTE STIMULATION TEST POSITIVE [None]
  - NEPHROGENIC ANAEMIA [None]
  - UTERINE LEIOMYOMA [None]
